FAERS Safety Report 6718626-9 (Version None)
Quarter: 2010Q2

REPORT INFORMATION
  Report Type: 
  Country: None (occurrence: None)
  Receive Date: 20100505
  Receipt Date: 20100422
  Transmission Date: 20101027
  Serious: Yes (Congenital Anomaly)
  Sender: FDA-Public Use
  Company Number: 167-20484-09111496

PATIENT
  Sex: Female
  Weight: 4 kg

DRUGS (18)
  1. INNOHEP [Suspect]
     Dosage: TRANSPLACENTAL
     Route: 064
     Dates: start: 20050707, end: 20050804
  2. SALBUTAMOL (SALBUTAMOL) [Concomitant]
  3. METOCLOPRAMIDE (METOCLOPRAMIDE) [Concomitant]
  4. THIAMINE (THIAMINE) [Concomitant]
  5. FOLIC ACID [Concomitant]
  6. HEPARIN [Concomitant]
  7. CYCLIZINE (CYCLIZINE) [Concomitant]
  8. PREDNISOLONE [Concomitant]
  9. BECLOMETHSONE (BECLOMETASONE DIPROPIONATE) [Concomitant]
  10. ATROVENT [Concomitant]
  11. AUGMENTIN '125' [Concomitant]
  12. AMOXICILLIN [Concomitant]
  13. ERYTHROMYCIN [Concomitant]
  14. SIMPLE LINCTUS (CITRIC ACID) [Concomitant]
  15. CODYRRAMOL (ALL OTHER THERAPEUTIC PRODUCTS) [Concomitant]
  16. LACTULOSE [Concomitant]
  17. MEPTID (MEPTAZINOL) [Concomitant]
  18. PHENERGAN (PROMETHAZINE) [Concomitant]

REACTIONS (3)
  - LARGE FOR DATES BABY [None]
  - MATERNAL DRUGS AFFECTING FOETUS [None]
  - PILONIDAL CYST CONGENITAL [None]
